FAERS Safety Report 6175913-3 (Version None)
Quarter: 2009Q2

REPORT INFORMATION
  Report Type: 
  Country: None (occurrence: None)
  Receive Date: 20090501
  Receipt Date: 20090425
  Transmission Date: 20091009
  Serious: Yes (Hospitalization, Other)
  Sender: FDA-Public Use
  Company Number: ES-BAYER-200919509GPV

PATIENT
  Age: 31 Year
  Sex: Male

DRUGS (9)
  1. ALEMTUZUMAB [Suspect]
     Indication: TRANSPLANT
     Route: 042
     Dates: start: 20070101
  2. TACROLIMUS [Concomitant]
     Indication: TRANSPLANT
     Dosage: 12-18 NG/ML
     Dates: start: 20070101
  3. TACROLIMUS [Concomitant]
     Dosage: 8-12 NG/ML
  4. TACROLIMUS [Concomitant]
     Dosage: 20 NG/ML
  5. TACROLIMUS [Concomitant]
     Dosage: 8 - 10 NG/ML
  6. MYCOPHENOLATE MOFETIL [Concomitant]
     Indication: TRANSPLANT
     Dates: start: 20070101
  7. MYCOPHENOLATE MOFETIL [Concomitant]
  8. PREDNISONE [Concomitant]
     Indication: TRANSPLANT
     Dates: start: 20070101
  9. PREDNISONE [Concomitant]
     Dosage: TAPERED TO 5 MG/DAY

REACTIONS (5)
  - HYPERSENSITIVITY [None]
  - HYPOTENSION [None]
  - LYMPHOPENIA [None]
  - RASH [None]
  - TRANSPLANT REJECTION [None]
